FAERS Safety Report 4950567-X (Version None)
Quarter: 2006Q1

REPORT INFORMATION
  Report Type: 
  Country: None (occurrence: None)
  Receive Date: 20060316
  Receipt Date: 20060302
  Transmission Date: 20060701
  Serious: Yes (Other)
  Sender: FDA-Public Use
  Company Number: 2006P1000130

PATIENT
  Age: 60 Year
  Sex: Male
  Weight: 93 kg

DRUGS (7)
  1. RETEPLASE (RETEPLASE) [Suspect]
     Indication: ACUTE MYOCARDIAL INFARCTION
     Dosage: IV
     Route: 042
     Dates: start: 20060112, end: 20060112
  2. ABCIXIMAB (ABCIXIMAB) [Suspect]
     Indication: ACUTE MYOCARDIAL INFARCTION
     Dosage: IV
     Route: 042
     Dates: start: 20060112, end: 20060112
  3. METOPROLOL [Concomitant]
  4. CLOPIDOGREL [Concomitant]
  5. PRAVASTATIN [Concomitant]
  6. PERINDOPRIL [Concomitant]
  7. ACENOCOUMAROL [Concomitant]

REACTIONS (1)
  - CORONARY ARTERY STENOSIS [None]
